FAERS Safety Report 17031513 (Version 1)
Quarter: 2019Q4

REPORT INFORMATION
  Report Type: Spontaneous
  Country: US (occurrence: US)
  Receive Date: 20191113
  Receipt Date: 20191113
  Transmission Date: 20200122
  Serious: Yes (Other)
  Sender: FDA-Public Use
  Company Number: None

PATIENT
  Age: 10 Year
  Sex: Male

DRUGS (4)
  1. CIPROHEPTADINE [Concomitant]
  2. PIMOZIDE. [Suspect]
     Active Substance: PIMOZIDE
     Indication: TIC
     Route: 048
     Dates: start: 20191031
  3. ALBUTEROL. [Concomitant]
     Active Substance: ALBUTEROL
  4. SINGULAIR [Concomitant]
     Active Substance: MONTELUKAST SODIUM

REACTIONS (1)
  - Amnesia [None]

NARRATIVE: CASE EVENT DATE: 20191112
